FAERS Safety Report 7313442-1 (Version None)
Quarter: 2011Q1

REPORT INFORMATION
  Report Type: 
  Country: None (occurrence: None)
  Receive Date: 20110225
  Receipt Date: 20110222
  Transmission Date: 20110831
  Serious: Yes (Other)
  Sender: FDA-Public Use
  Company Number: US-PFIZER INC-2011039056

PATIENT
  Sex: Female
  Weight: 82 kg

DRUGS (3)
  1. ALBUTEROL [Concomitant]
     Dosage: 200 MG, 1X/DAY
  2. NIFEDIPINE [Suspect]
     Indication: BLOOD PRESSURE ABNORMAL
     Dosage: 90 MG, 1X/DAY
     Route: 048
     Dates: start: 20110204
  3. ALTACE [Concomitant]
     Dosage: UNK

REACTIONS (1)
  - BLOOD PRESSURE INCREASED [None]
